FAERS Safety Report 19513756 (Version 2)
Quarter: 2021Q3

REPORT INFORMATION
  Report Type: Spontaneous
  Country: CN (occurrence: CN)
  Receive Date: 20210710
  Receipt Date: 20210721
  Transmission Date: 20211014
  Serious: Yes (Other)
  Sender: FDA-Public Use
  Company Number: CN-ABBVIE-21K-035-3979000-00

PATIENT
  Age: 57 Year
  Sex: Female

DRUGS (4)
  1. ARBIDOL [Concomitant]
     Active Substance: UMIFENOVIR
     Indication: COVID-19 PNEUMONIA
     Route: 065
     Dates: start: 202002, end: 2020
  2. ALUVIA [Suspect]
     Active Substance: LOPINAVIR\RITONAVIR
     Indication: COVID-19 PNEUMONIA
     Route: 048
     Dates: start: 202002, end: 202002
  3. INTERFERON ALFA?2B RECOMBINANT [Concomitant]
     Active Substance: INTERFERON ALFA-2B
     Indication: COVID-19 PNEUMONIA
  4. THYMOPENTIN INJECTION [Concomitant]
     Indication: IMMUNODEFICIENCY
     Route: 030
     Dates: start: 202002

REACTIONS (2)
  - Thrombocytopenia [Recovered/Resolved]
  - Off label use [Unknown]

NARRATIVE: CASE EVENT DATE: 202002
